FAERS Safety Report 8794005 (Version 2)
Quarter: 2012Q4

REPORT INFORMATION
  Report Type: 
  Country: JP (occurrence: JP)
  Receive Date: 20120917
  Receipt Date: 20121002
  Transmission Date: 20130627
  Serious: No
  Sender: FDA-Public Use
  Company Number: JP-PFIZER INC-2012225914

PATIENT
  Age: 87 Year
  Sex: Female

DRUGS (2)
  1. LYRICA [Suspect]
     Indication: HYPOAESTHESIA
     Dosage: UNK
     Route: 048
     Dates: start: 20120829, end: 20120905
  2. LYRICA [Suspect]
     Dosage: UNK
     Route: 048
     Dates: start: 20120906, end: 20120909

REACTIONS (4)
  - Hypoaesthesia [Unknown]
  - Condition aggravated [Unknown]
  - Dizziness [Unknown]
  - Nightmare [Unknown]
